FAERS Safety Report 16325252 (Version 5)
Quarter: 2021Q4

REPORT INFORMATION
  Report Type: Spontaneous
  Country: US (occurrence: US)
  Receive Date: 20190517
  Receipt Date: 20211207
  Transmission Date: 20220303
  Serious: Yes (Other)
  Sender: FDA-Public Use
  Company Number: US-GILEAD-2019-0407764

PATIENT
  Age: 64 Year
  Sex: Female

DRUGS (34)
  1. VIREAD [Suspect]
     Active Substance: TENOFOVIR DISOPROXIL FUMARATE
     Indication: HIV infection
     Dosage: UNK
     Route: 048
     Dates: start: 20081229, end: 20150324
  2. VIREAD [Suspect]
     Active Substance: TENOFOVIR DISOPROXIL FUMARATE
     Dosage: UNK
     Route: 048
     Dates: start: 2010, end: 2013
  3. TRUVADA [Suspect]
     Active Substance: EMTRICITABINE\TENOFOVIR DISOPROXIL FUMARATE
     Indication: HIV infection
     Dosage: UNK
     Route: 048
     Dates: start: 20150430, end: 20170124
  4. TRUVADA [Suspect]
     Active Substance: EMTRICITABINE\TENOFOVIR DISOPROXIL FUMARATE
     Dosage: UNK
     Route: 048
     Dates: start: 2010, end: 2013
  5. COMPLERA [Suspect]
     Active Substance: EMTRICITABINE\RILPIVIRINE HYDROCHLORIDE\TENOFOVIR DISOPROXIL FUMARATE
     Indication: HIV infection
     Dosage: UNK
     Route: 065
     Dates: start: 2010, end: 2013
  6. DESCOVY [Concomitant]
     Active Substance: EMTRICITABINE\TENOFOVIR ALAFENAMIDE FUMARATE
  7. COMBIVIR [Concomitant]
     Active Substance: LAMIVUDINE\ZIDOVUDINE
  8. NORVIR [Concomitant]
     Active Substance: RITONAVIR
  9. PREZCOBIX [Concomitant]
     Active Substance: COBICISTAT\DARUNAVIR ETHANOLATE
  10. PREZISTA [Concomitant]
     Active Substance: DARUNAVIR ETHANOLATE
  11. TIVICAY [Concomitant]
     Active Substance: DOLUTEGRAVIR SODIUM
  12. CYMBALTA [Concomitant]
     Active Substance: DULOXETINE HYDROCHLORIDE
  13. PREVACID [Concomitant]
     Active Substance: LANSOPRAZOLE
  14. NEXIUM I.V. [Concomitant]
     Active Substance: ESOMEPRAZOLE SODIUM
  15. CARVEDILOL [Concomitant]
     Active Substance: CARVEDILOL
  16. ETODOLAC [Concomitant]
     Active Substance: ETODOLAC
  17. CYCLOBENZAPRINE [Concomitant]
     Active Substance: CYCLOBENZAPRINE
  18. DETROL [Concomitant]
     Active Substance: TOLTERODINE TARTRATE
  19. PRAVASTATIN [Concomitant]
     Active Substance: PRAVASTATIN
  20. METOCLOPRAMIDE [Concomitant]
     Active Substance: METOCLOPRAMIDE
  21. ACETYLCYSTEINE\LEVOMEFOLATE CALCIUM\METHYLCOBALAMIN [Concomitant]
     Active Substance: ACETYLCYSTEINE\LEVOMEFOLATE CALCIUM\METHYLCOBALAMIN
  22. FAMCICLOVIR [Concomitant]
     Active Substance: FAMCICLOVIR
  23. OXYBUTYNIN [Concomitant]
     Active Substance: OXYBUTYNIN
  24. TEMAZEPAM [Concomitant]
     Active Substance: TEMAZEPAM
  25. CRESTOR [Concomitant]
     Active Substance: ROSUVASTATIN CALCIUM
  26. RIVASTIGMINE [Concomitant]
     Active Substance: RIVASTIGMINE
  27. TOVIAZ [Concomitant]
     Active Substance: FESOTERODINE FUMARATE
  28. TRAMADOL [Concomitant]
     Active Substance: TRAMADOL
  29. ARICEPT [Concomitant]
     Active Substance: DONEPEZIL HYDROCHLORIDE
  30. JULUCA [Concomitant]
     Active Substance: DOLUTEGRAVIR SODIUM\RILPIVIRINE HYDROCHLORIDE
  31. TRINTELLIX [Concomitant]
     Active Substance: VORTIOXETINE HYDROBROMIDE
  32. DITROPAN [Concomitant]
     Active Substance: OXYBUTYNIN CHLORIDE
  33. GABAPENTIN [Concomitant]
     Active Substance: GABAPENTIN
  34. ROSUVASTATIN [Concomitant]
     Active Substance: ROSUVASTATIN

REACTIONS (15)
  - Osteoporosis [Unknown]
  - Rib fracture [Unknown]
  - Wrist fracture [Unknown]
  - Drug resistance [Unknown]
  - Emotional distress [Not Recovered/Not Resolved]
  - Anhedonia [Not Recovered/Not Resolved]
  - Economic problem [Not Recovered/Not Resolved]
  - Anxiety [Not Recovered/Not Resolved]
  - Pain [Not Recovered/Not Resolved]
  - Musculoskeletal pain [Unknown]
  - Back pain [Unknown]
  - Arthralgia [Unknown]
  - Pain in extremity [Unknown]
  - Osteopenia [Unknown]
  - Renal disorder [Unknown]

NARRATIVE: CASE EVENT DATE: 20130101
